FAERS Safety Report 7915058-2 (Version None)
Quarter: 2011Q4

REPORT INFORMATION
  Report Type: 
  Country: None (occurrence: None)
  Receive Date: 20111115
  Receipt Date: 20111110
  Transmission Date: 20120403
  Serious: Yes (Other)
  Sender: FDA-Public Use
  Company Number: US-SANOFI-AVENTIS-2011SA074765

PATIENT
  Age: 42 Year
  Sex: Female

DRUGS (2)
  1. APIDRA [Suspect]
     Route: 058
  2. LANTUS [Suspect]
     Dosage: AT 11 PM
     Route: 058

REACTIONS (6)
  - POLYDIPSIA [None]
  - MENTAL IMPAIRMENT [None]
  - MEMORY IMPAIRMENT [None]
  - MEDICATION ERROR [None]
  - CONFUSIONAL STATE [None]
  - HYPERGLYCAEMIA [None]
